FAERS Safety Report 20306563 (Version 1)
Quarter: 2022Q1

REPORT INFORMATION
  Report Type: Spontaneous
  Country: CN (occurrence: CN)
  Receive Date: 20220106
  Receipt Date: 20220106
  Transmission Date: 20220423
  Serious: Yes (Other)
  Sender: FDA-Public Use
  Company Number: CN-009507513-2201CHN000583

PATIENT
  Age: 64 Year
  Sex: Male

DRUGS (2)
  1. CILASTATIN SODIUM\IMIPENEM [Suspect]
     Active Substance: CILASTATIN SODIUM\IMIPENEM
     Indication: Anti-infective therapy
     Dosage: 2 GRAMS, EVERY 8 HOURS (Q8H) (ALSO REPORTED AS TID)
     Route: 041
     Dates: start: 20211223, end: 20211230
  2. SODIUM CHLORIDE [Concomitant]
     Active Substance: SODIUM CHLORIDE
     Indication: Antibiotic prophylaxis
     Dosage: 100 MILLILITERS, 3 TIMES PER DAY (TID)
     Route: 041
     Dates: start: 20211223, end: 20211230

REACTIONS (4)
  - Hallucination [Recovering/Resolving]
  - Delirium [Recovering/Resolving]
  - Restlessness [Recovering/Resolving]
  - Overdose [Unknown]

NARRATIVE: CASE EVENT DATE: 20211223
